FAERS Safety Report 7863712-3 (Version None)
Quarter: 2011Q4

REPORT INFORMATION
  Report Type: 
  Country: None (occurrence: None)
  Receive Date: 20111027
  Receipt Date: 20101209
  Transmission Date: 20120403
  Serious: No
  Sender: FDA-Public Use
  Company Number: US-AMGEN-USASP2010004844

PATIENT
  Age: 47 Year
  Sex: Female

DRUGS (3)
  1. ENBREL [Suspect]
     Dates: start: 20101105
  2. METHOCARBAMOL [Concomitant]
  3. ENBREL [Suspect]
     Indication: RHEUMATOID ARTHRITIS
     Dosage: 50 MG, QWK
     Dates: start: 20101105

REACTIONS (9)
  - NAUSEA [None]
  - DIARRHOEA [None]
  - HEADACHE [None]
  - INJECTION SITE ERYTHEMA [None]
  - FATIGUE [None]
  - FEELING ABNORMAL [None]
  - INJECTION SITE PAIN [None]
  - VOMITING [None]
  - INJECTION SITE SWELLING [None]
